FAERS Safety Report 10256166 (Version 1)
Quarter: 2014Q2

REPORT INFORMATION
  Report Type: Spontaneous
  Country: US (occurrence: US)
  Receive Date: 20140624
  Receipt Date: 20140624
  Transmission Date: 20141212
  Serious: No
  Sender: FDA-Public Use
  Company Number: US-ZOGENIX, INC.-2012ZX000071

PATIENT
  Age: 46 Year
  Sex: Female
  Weight: 95.34 kg

DRUGS (3)
  1. SUMAVEL DOSEPRO [Suspect]
     Indication: MIGRAINE
  2. PROPRANOLOL [Concomitant]
     Indication: HYPERTENSION
  3. LUNESTA [Concomitant]
     Indication: SLEEP DISORDER

REACTIONS (6)
  - Injection site laceration [Not Recovered/Not Resolved]
  - Injection site haemorrhage [Recovered/Resolved]
  - Injection site erythema [Not Recovered/Not Resolved]
  - Drug ineffective [Recovered/Resolved]
  - Incorrect dose administered by device [Recovered/Resolved]
  - Device breakage [Recovered/Resolved]
